FAERS Safety Report 9204856 (Version 2)
Quarter: 2013Q2

REPORT INFORMATION
  Report Type: Spontaneous
  Country: US (occurrence: None)
  Receive Date: 20130329
  Receipt Date: 20130410
  Transmission Date: 20140414
  Serious: Yes (Other)
  Sender: FDA-Public Use
  Company Number: JPI-P-030700

PATIENT
  Age: 50 Year
  Sex: Female
  Weight: 47.63 kg

DRUGS (2)
  1. XYREM [Suspect]
     Indication: NARCOLEPSY
     Route: 048
     Dates: start: 201204
  2. XYREM [Suspect]
     Indication: SOMNOLENCE
     Route: 048
     Dates: start: 201204

REACTIONS (7)
  - Paraesthesia [None]
  - Erythromelalgia [None]
  - Paraesthesia [None]
  - Feeling hot [None]
  - Hyperhidrosis [None]
  - Swelling [None]
  - Carpal tunnel decompression [None]
